FAERS Safety Report 7386002-4 (Version None)
Quarter: 2011Q1

REPORT INFORMATION
  Report Type: 
  Country: None (occurrence: None)
  Receive Date: 20110330
  Receipt Date: 20110325
  Transmission Date: 20110831
  Serious: Yes (Hospitalization)
  Sender: FDA-Public Use
  Company Number: DL2011-0235

PATIENT
  Age: 19 Year
  Sex: Female

DRUGS (3)
  1. MIFEPREX [Suspect]
     Indication: ABORTION INDUCED
     Dosage: 200 MG, ORAL
     Route: 048
     Dates: start: 20110225
  2. MISOPROSTOL [Suspect]
     Indication: ABORTION INDUCED
     Dosage: 800 MCG, BUCCAL
     Route: 002
  3. DOXYCYCLINE [Concomitant]

REACTIONS (5)
  - HYPOAESTHESIA [None]
  - NAUSEA [None]
  - VAGINAL HAEMORRHAGE [None]
  - DYSPNOEA [None]
  - VOMITING [None]
